FAERS Safety Report 10202449 (Version 1)
Quarter: 2014Q2

REPORT INFORMATION
  Report Type: Spontaneous
  Country: SE (occurrence: SE)
  Receive Date: 20140528
  Receipt Date: 20140528
  Transmission Date: 20141212
  Serious: Yes (Hospitalization, Other)
  Sender: FDA-Public Use
  Company Number: SE-PFIZER INC-2014141442

PATIENT
  Age: 28 Year
  Sex: Female

DRUGS (3)
  1. LYRICA [Suspect]
     Dosage: 1 G, SINGLE
     Dates: start: 20140511, end: 20140511
  2. STESOLID [Suspect]
     Dosage: 300 MG, SINGLE
     Dates: start: 20140511, end: 20140511
  3. IMOVANE [Suspect]
     Dosage: 225 MG, SINGLE
     Dates: start: 20140511, end: 20140511

REACTIONS (3)
  - Suicidal ideation [Unknown]
  - Toxicity to various agents [Unknown]
  - Self injurious behaviour [Unknown]
